FAERS Safety Report 6128741-9 (Version None)
Quarter: 2009Q1

REPORT INFORMATION
  Report Type: 
  Country: None (occurrence: None)
  Receive Date: 20090323
  Receipt Date: 20090309
  Transmission Date: 20090719
  Serious: Yes (Other)
  Sender: FDA-Public Use
  Company Number: US-PFIZER INC-2009175484

PATIENT
  Sex: Male
  Weight: 104.32 kg

DRUGS (4)
  1. CHANTIX [Suspect]
     Indication: SMOKING CESSATION THERAPY
     Dates: start: 20090204, end: 20090211
  2. ALCOHOL [Suspect]
  3. DESIPRAMINE HCL [Concomitant]
  4. MELOXICAM [Concomitant]

REACTIONS (1)
  - DELUSION [None]
